FAERS Safety Report 14247913 (Version 4)
Quarter: 2018Q1

REPORT INFORMATION
  Report Type: Spontaneous
  Country: DE (occurrence: DE)
  Receive Date: 20171204
  Receipt Date: 20180208
  Transmission Date: 20180508
  Serious: Yes (Other)
  Sender: FDA-Public Use
  Company Number: DE-GLAXOSMITHKLINE-DE2017GSK185503

PATIENT
  Age: 75 Year
  Sex: Male

DRUGS (4)
  1. VOLTAREN SCHMERZGEL [Suspect]
     Active Substance: DICLOFENAC DIETHYLAMINE
     Indication: MUSCULOSKELETAL PAIN
     Dosage: UNK
     Route: 061
     Dates: start: 20170729, end: 20170729
  2. VOLTAREN SCHMERZGEL [Suspect]
     Active Substance: DICLOFENAC DIETHYLAMINE
     Indication: ARTHRALGIA
  3. RAMILICH [Concomitant]
     Active Substance: RAMIPRIL
     Indication: HYPERTENSION
     Dosage: 10 MG, U
     Route: 048
  4. ALLOPURINOL HEUMANN [Concomitant]
     Indication: GOUT
     Dosage: 100 MG, U
     Route: 048

REACTIONS (9)
  - Heavy exposure to ultraviolet light [Recovered/Resolved]
  - Photosensitivity reaction [Recovered/Resolved]
  - Skin burning sensation [Recovered/Resolved]
  - Thermal burn [Recovered/Resolved]
  - Photodermatosis [Recovered/Resolved]
  - Sunburn [Recovered/Resolved]
  - Blister [Recovered/Resolved]
  - Expired product administered [Recovered/Resolved]
  - Haemorrhage [Recovered/Resolved]

NARRATIVE: CASE EVENT DATE: 20170729
